FAERS Safety Report 13525929 (Version 1)
Quarter: 2017Q2

REPORT INFORMATION
  Report Type: Spontaneous
  Country: CA (occurrence: CA)
  Receive Date: 20170509
  Receipt Date: 20170509
  Transmission Date: 20170830
  Serious: Yes (Death, Hospitalization, Other)
  Sender: FDA-Public Use
  Company Number: CA-009507513-1705CAN003520

PATIENT
  Age: 65 Year
  Sex: Female

DRUGS (1)
  1. KEYTRUDA [Suspect]
     Active Substance: PEMBROLIZUMAB
     Indication: NON-SMALL CELL LUNG CANCER
     Dosage: UNK
     Dates: start: 20160603, end: 20160603

REACTIONS (2)
  - Malignant neoplasm progression [Fatal]
  - Urosepsis [Recovered/Resolved]

NARRATIVE: CASE EVENT DATE: 201606
